FAERS Safety Report 15738901 (Version 1)
Quarter: 2018Q4

REPORT INFORMATION
  Report Type: Spontaneous
  Country: FI (occurrence: FI)
  Receive Date: 20181219
  Receipt Date: 20181219
  Transmission Date: 20190205
  Serious: Yes (Hospitalization)
  Sender: FDA-Public Use
  Company Number: FI-ASTRAZENECA-2018SF64203

PATIENT
  Age: 78 Year
  Sex: Female

DRUGS (5)
  1. JANUVIA [Concomitant]
     Active Substance: SITAGLIPTIN PHOSPHATE
     Dosage: 100 MG, DAILY
     Route: 048
  2. ATORVASTATIN [Concomitant]
     Active Substance: ATORVASTATIN
     Dosage: 20MG, DAILY
     Route: 048
  3. FORXIGA [Suspect]
     Active Substance: DAPAGLIFLOZIN
     Indication: DIABETES MELLITUS
     Dosage: 10 MG, DAILY
     Route: 048
     Dates: start: 20180620, end: 20181116
  4. EMCONCOR [Concomitant]
     Active Substance: BISOPROLOL FUMARATE
     Dosage: 10 MG, DAILY
     Route: 048
  5. XARELTO [Concomitant]
     Active Substance: RIVAROXABAN
     Dosage: 20MG, DAILY
     Route: 048

REACTIONS (8)
  - Urinary incontinence [Unknown]
  - Bladder dilatation [Unknown]
  - Genital candidiasis [Unknown]
  - Candiduria [Unknown]
  - Urinary tract inflammation [Unknown]
  - Bladder hypertrophy [Unknown]
  - Sepsis [Unknown]
  - Haematuria [Unknown]

NARRATIVE: CASE EVENT DATE: 2018
